FAERS Safety Report 5021610-7 (Version None)
Quarter: 2006Q2

REPORT INFORMATION
  Report Type: 
  Country: None (occurrence: None)
  Receive Date: 20060605
  Receipt Date: 20060519
  Transmission Date: 20061013
  Serious: Yes (Other)
  Sender: FDA-Public Use
  Company Number: US200605004172

PATIENT
  Age: 53 Year
  Sex: Female

DRUGS (2)
  1. GEMZAR [Suspect]
     Indication: OVARIAN CANCER
     Dates: start: 20060201
  2. TAXOTERE [Concomitant]

REACTIONS (1)
  - COLITIS ISCHAEMIC [None]
